FAERS Safety Report 4468022-2 (Version None)
Quarter: 2004Q4

REPORT INFORMATION
  Report Type: 
  Country: None (occurrence: None)
  Receive Date: 20041004
  Receipt Date: 20040923
  Transmission Date: 20050328
  Serious: Yes (Hospitalization)
  Sender: FDA-Public Use
  Company Number: 2004235599DE

PATIENT
  Age: 62 Year
  Sex: Male
  Weight: 95 kg

DRUGS (2)
  1. CLINDAMYCIN HYDROCHLORIDE [Suspect]
     Indication: BRAIN ABSCESS
     Dosage: 150 MG, TID, ORAL; 600 MG, TID, ORAL
     Route: 048
     Dates: start: 20031017, end: 20031021
  2. CLINDAMYCIN HYDROCHLORIDE [Suspect]
     Indication: BRAIN ABSCESS
     Dosage: 150 MG, TID, ORAL; 600 MG, TID, ORAL
     Route: 048
     Dates: start: 20031022

REACTIONS (5)
  - BACTERIAL INFECTION [None]
  - CONVULSION [None]
  - ENCEPHALITIS MENINGOCOCCAL [None]
  - HEMIPARESIS [None]
  - SUBDURAL EMPYEMA [None]
